FAERS Safety Report 11418977 (Version 1)
Quarter: 2015Q3

REPORT INFORMATION
  Report Type: Spontaneous
  Country: US (occurrence: US)
  Receive Date: 20150826
  Receipt Date: 20150826
  Transmission Date: 20151125
  Serious: Yes (Other)
  Sender: FDA-Public Use
  Company Number: US-ACCORD-033316

PATIENT
  Age: 60 Year
  Sex: Male

DRUGS (3)
  1. LISINOPRIL. [Suspect]
     Active Substance: LISINOPRIL
     Indication: HYPERTENSION
  2. MELOXICAM. [Interacting]
     Active Substance: MELOXICAM
     Indication: PAIN
     Dosage: OVER THE PAST 3 MONTHS, TOOK MELOXICAM 15 MG DAILY
  3. SIMVASTATIN. [Concomitant]
     Active Substance: SIMVASTATIN

REACTIONS (3)
  - Nephropathy [Not Recovered/Not Resolved]
  - Fatigue [Recovering/Resolving]
  - Drug interaction [Unknown]
